FAERS Safety Report 4964147-3 (Version None)
Quarter: 2006Q1

REPORT INFORMATION
  Report Type: 
  Country: None (occurrence: None)
  Receive Date: 20060330
  Receipt Date: 20060323
  Transmission Date: 20060701
  Serious: Yes (Death)
  Sender: FDA-Public Use
  Company Number: 163-21880-06030789

PATIENT
  Age: 80 Year
  Sex: Male

DRUGS (1)
  1. REVLIMID [Suspect]
     Indication: MYELODYSPLASTIC SYNDROME
     Dosage: 10MG, DAILY, ORAL
     Route: 048
     Dates: start: 20060304, end: 20060324

REACTIONS (7)
  - ANOREXIA [None]
  - DISEASE PROGRESSION [None]
  - FATIGUE [None]
  - MALAISE [None]
  - PETECHIAE [None]
  - PYREXIA [None]
  - RASH [None]
